FAERS Safety Report 4295069-1 (Version None)
Quarter: 2004Q1

REPORT INFORMATION
  Report Type: 
  Country: None (occurrence: None)
  Receive Date: 20040212
  Receipt Date: 20040206
  Transmission Date: 20041129
  Serious: Yes (Death)
  Sender: FDA-Public Use
  Company Number: US-JNJFOC-20040201779

PATIENT
  Age: 87 Year
  Sex: Male

DRUGS (1)
  1. NIZORAL [Suspect]
     Indication: PROSTATE CANCER
     Dosage: 200 MG, ORAL
     Route: 048

REACTIONS (1)
  - DEATH [None]
